FAERS Safety Report 4295261-6 (Version None)
Quarter: 2004Q1

REPORT INFORMATION
  Report Type: 
  Country: None (occurrence: None)
  Receive Date: 20040216
  Receipt Date: 20030505
  Transmission Date: 20041129
  Serious: No
  Sender: FDA-Public Use
  Company Number: US-GLAXOSMITHKLINE-A0407159A

PATIENT
  Age: 37 Year
  Sex: Female

DRUGS (19)
  1. LAMICTAL [Suspect]
     Dosage: 100MG TWICE PER DAY
     Route: 048
  2. DILANTIN [Concomitant]
     Route: 065
  3. NEORAL [Concomitant]
     Route: 065
  4. PREDNISONE [Concomitant]
     Route: 065
  5. DURAGESIC [Concomitant]
     Route: 065
  6. FIORICET [Concomitant]
     Route: 065
  7. CIPRO [Concomitant]
     Route: 065
  8. UNKNOWN MEDICATION [Concomitant]
     Route: 065
  9. VALIUM [Concomitant]
     Route: 065
  10. OXYCONTIN [Concomitant]
     Route: 065
  11. COUMADIN [Concomitant]
     Route: 065
  12. LASIX [Concomitant]
     Route: 065
  13. PHENERGAN [Concomitant]
     Route: 065
  14. PRILOSEC [Concomitant]
     Route: 065
  15. MIACALCIN [Concomitant]
     Route: 055
  16. RESTORIL [Concomitant]
     Route: 065
  17. DAPSONE [Concomitant]
     Route: 065
  18. CLARINEX [Concomitant]
     Route: 065
  19. LAXATIVE [Concomitant]
     Route: 065

REACTIONS (2)
  - FATIGUE [None]
  - NAIL DISCOLOURATION [None]
